FAERS Safety Report 7945847-X (Version None)
Quarter: 2011Q4

REPORT INFORMATION
  Report Type: 
  Country: None (occurrence: None)
  Receive Date: 20111129
  Receipt Date: 20111117
  Transmission Date: 20120403
  Serious: Yes (Other)
  Sender: FDA-Public Use
  Company Number: PHHY2011NL101290

PATIENT
  Sex: Male
  Weight: 79 kg

DRUGS (9)
  1. SPIRONOLACTONE [Concomitant]
     Dosage: 125 MG, UNK
     Dates: start: 20100813, end: 20110601
  2. INSPRA [Concomitant]
     Dosage: 25 MG, QD
     Dates: start: 20110601
  3. CARVEDILOL [Concomitant]
     Dosage: 12.5 MG, BID
     Dates: start: 20100105
  4. SINTROM [Concomitant]
     Dates: start: 20100214
  5. AMIODARONE HCL [Concomitant]
     Dosage: 50 MG, QD
     Dates: start: 20100214, end: 20101004
  6. DIOVAN [Suspect]
     Indication: CARDIAC FAILURE
     Dosage: 80 MG, BID
     Dates: start: 20100201, end: 20110830
  7. FUROSEMIDE [Concomitant]
     Dosage: 20 MG, BID
     Dates: start: 20110105
  8. RAMIPRIL [Concomitant]
     Dosage: 5 MG, BID
     Dates: start: 20110831
  9. LIPITOR [Concomitant]
     Dosage: 10 MG, QD
     Dates: start: 20101004

REACTIONS (5)
  - ANAEMIA [None]
  - HAEMOGLOBIN DECREASED [None]
  - APLASTIC ANAEMIA [None]
  - BONE MARROW FAILURE [None]
  - IMMUNOSUPPRESSION [None]
